FAERS Safety Report 4509391-4 (Version None)
Quarter: 2004Q4

REPORT INFORMATION
  Report Type: 
  Country: None (occurrence: None)
  Receive Date: 20041025
  Receipt Date: 20040625
  Transmission Date: 20050328
  Serious: Yes (Hospitalization)
  Sender: FDA-Public Use
  Company Number: US-JNJFOC-20040607588

PATIENT
  Age: 36 Year
  Sex: Female

DRUGS (10)
  1. INFLIXIMAB (INFLIXIMAB, RECOMBINANT) LYOPHILIZED POWDER [Suspect]
     Indication: RHEUMATOID ARTHRITIS
     Dosage: INTRAVENOUS
     Route: 042
     Dates: start: 20010406, end: 20010901
  2. METHOTREXATE [Concomitant]
  3. PREDNISONE [Concomitant]
  4. ENBREL [Concomitant]
  5. TOPAMAX [Concomitant]
  6. ZOLOFT [Concomitant]
  7. PLAQUENIL [Concomitant]
  8. OXYCONTIN [Concomitant]
  9. XANAX [Concomitant]
  10. PHENERGAN [Concomitant]

REACTIONS (3)
  - CHOLECYSTITIS ACUTE [None]
  - CHOLELITHIASIS [None]
  - HYPOKALAEMIA [None]
